FAERS Safety Report 24352611 (Version 1)
Quarter: 2024Q3

REPORT INFORMATION
  Report Type: Spontaneous
  Country: US (occurrence: US)
  Receive Date: 20240923
  Receipt Date: 20240923
  Transmission Date: 20241017
  Serious: No
  Sender: ROCHE
  Company Number: US-ROCHE-3433013

PATIENT
  Sex: Female
  Weight: 72.57 kg

DRUGS (2)
  1. HERCEPTIN [Suspect]
     Active Substance: TRASTUZUMAB
     Indication: Breast cancer metastatic
     Route: 042
     Dates: start: 2019
  2. ERIBULIN [Concomitant]
     Active Substance: ERIBULIN
     Indication: Breast cancer
     Route: 042
     Dates: start: 2014, end: 2023

REACTIONS (1)
  - Neuropathy peripheral [Recovering/Resolving]
